FAERS Safety Report 26156995 (Version 1)
Quarter: 2025Q4

REPORT INFORMATION
  Report Type: Spontaneous
  Country: US (occurrence: US)
  Receive Date: 20251215
  Receipt Date: 20251215
  Transmission Date: 20260118
  Serious: No
  Sender: ALCON
  Company Number: US-ALCON LABORATORIES-ALC2025US006934

PATIENT
  Age: 67 Year
  Sex: Female

DRUGS (6)
  1. ACOLTREMON [Suspect]
     Active Substance: ACOLTREMON
     Indication: Product used for unknown indication
     Dosage: INSTILL 1 DROP INTO EACH EYE TWICE A DAY
     Route: 047
     Dates: start: 20251030
  2. APPLE CIDER VINEGAR [Concomitant]
     Active Substance: APPLE CIDER VINEGAR
     Indication: Product used for unknown indication
     Route: 065
  3. PROBIOTICS NOS [Concomitant]
     Active Substance: PROBIOTICS NOS
     Indication: Product used for unknown indication
     Route: 065
  4. PROGESTERONE [Concomitant]
     Active Substance: PROGESTERONE
     Indication: Product used for unknown indication
     Route: 065
  5. SLIPPERY ELM BARK [Concomitant]
     Indication: Product used for unknown indication
     Route: 065
  6. Vitamin d2 + k1 [Concomitant]
     Indication: Product used for unknown indication
     Route: 065

REACTIONS (5)
  - Headache [Unknown]
  - Hypoaesthesia oral [Unknown]
  - Dysgeusia [Unknown]
  - Oropharyngeal pain [Unknown]
  - Eye pain [Unknown]
